FAERS Safety Report 18173815 (Version 6)
Quarter: 2021Q2

REPORT INFORMATION
  Report Type: Spontaneous
  Country: CA (occurrence: CA)
  Receive Date: 20200820
  Receipt Date: 20210505
  Transmission Date: 20210717
  Serious: Yes (Other)
  Sender: FDA-Public Use
  Company Number: CA-CELLTRION INC.-2019CA027671

PATIENT

DRUGS (15)
  1. INFLECTRA [Suspect]
     Active Substance: INFLIXIMAB-DYYB
     Dosage: 400 MG, (EVERY 6 WEEKS)
     Route: 042
     Dates: start: 20200409
  2. INFLECTRA [Suspect]
     Active Substance: INFLIXIMAB-DYYB
     Dosage: 400 MG, (EVERY 6 WEEKS)
     Route: 042
     Dates: start: 20210422
  3. NYSTATIN. [Concomitant]
     Active Substance: NYSTATIN
     Dosage: UNK
  4. INFLECTRA [Suspect]
     Active Substance: INFLIXIMAB-DYYB
     Indication: CROHN^S DISEASE
     Dosage: 400 MG, (EVERY 6 WEEKS)
     Route: 042
     Dates: start: 20200220
  5. INFLECTRA [Suspect]
     Active Substance: INFLIXIMAB-DYYB
     Dosage: 400 MG, (EVERY 6 WEEKS)
     Route: 042
     Dates: start: 20200703
  6. INFLECTRA [Suspect]
     Active Substance: INFLIXIMAB-DYYB
     Dosage: 400 MG, (EVERY 6 WEEKS)
     Route: 042
     Dates: start: 20210126
  7. INFLECTRA [Suspect]
     Active Substance: INFLIXIMAB-DYYB
     Dosage: 400 MG, (EVERY 6 WEEKS)
     Route: 042
     Dates: start: 20210126
  8. INFLECTRA [Suspect]
     Active Substance: INFLIXIMAB-DYYB
     Dosage: 400 MG, (EVERY 6 WEEKS)
     Route: 042
     Dates: start: 20200703
  9. SYNTHROID [Concomitant]
     Active Substance: LEVOTHYROXINE SODIUM
     Indication: HYPOTHYROIDISM
     Dosage: UNK, 1X/DAY (UNKNOW DOSE/FREQUENCY)
     Route: 048
  10. TAMOXIFEN [Concomitant]
     Active Substance: TAMOXIFEN
     Indication: BREAST CANCER
     Dosage: 1 DF, 1X/DAY
     Route: 048
     Dates: start: 2017
  11. INFLECTRA [Suspect]
     Active Substance: INFLIXIMAB-DYYB
     Dosage: 400 MG, (EVERY 6 WEEKS)
     Route: 042
     Dates: start: 20201117
  12. INFLECTRA [Suspect]
     Active Substance: INFLIXIMAB-DYYB
     Dosage: 400 MG, (EVERY 6 WEEKS)
     Route: 042
     Dates: start: 20201105
  13. INFLECTRA [Suspect]
     Active Substance: INFLIXIMAB-DYYB
     Dosage: 400 MG, (EVERY 6 WEEKS)
     Route: 042
     Dates: start: 20210126
  14. RAMIPRIL. [Concomitant]
     Active Substance: RAMIPRIL
     Indication: HYPERTENSION
     Dosage: 5 MG, 1X/DAY
     Route: 048
  15. INFLECTRA [Suspect]
     Active Substance: INFLIXIMAB-DYYB
     Dosage: 400 MG, (EVERY 6 WEEKS)
     Route: 042
     Dates: start: 20210309

REACTIONS (9)
  - Chills [Unknown]
  - Mass [Recovered/Resolved]
  - Oral pain [Recovered/Resolved]
  - Malaise [Unknown]
  - Pharyngeal haemorrhage [Unknown]
  - Stomatitis [Recovered/Resolved]
  - Off label use [Unknown]
  - Oropharyngeal pain [Recovered/Resolved]
  - Pain in extremity [Recovered/Resolved]

NARRATIVE: CASE EVENT DATE: 2020
